FAERS Safety Report 17410327 (Version 2)
Quarter: 2020Q3

REPORT INFORMATION
  Report Type: Report from Study
  Country: US (occurrence: US)
  Receive Date: 20200212
  Receipt Date: 20200911
  Transmission Date: 20201102
  Serious: No
  Sender: FDA-Public Use
  Company Number: US-JNJFOC-20200205864

PATIENT
  Age: 71 Year
  Sex: Male

DRUGS (1)
  1. STELARA [Suspect]
     Active Substance: USTEKINUMAB
     Indication: PSORIASIS
     Route: 058
     Dates: start: 20110131, end: 20191211

REACTIONS (4)
  - Hypoaesthesia [Unknown]
  - Squamous cell carcinoma [Unknown]
  - Allergic sinusitis [Unknown]
  - Depression [Unknown]

NARRATIVE: CASE EVENT DATE: 20170105
